FAERS Safety Report 4679036-1 (Version None)
Quarter: 2005Q2

REPORT INFORMATION
  Report Type: 
  Country: None (occurrence: None)
  Receive Date: 20050531
  Receipt Date: 20050509
  Transmission Date: 20051028
  Serious: Yes (Hospitalization)
  Sender: FDA-Public Use
  Company Number: PAR_0065_2005

PATIENT
  Age: 42 Year
  Sex: Male

DRUGS (5)
  1. ISOPTIN [Suspect]
     Indication: CARDIAC DISORDER
     Dosage: DF PO
     Route: 048
  2. VALPROIC ACID [Suspect]
     Indication: CARDIAC DISORDER
     Dosage: 250 MG QDAY
     Dates: start: 19990101
  3. LOFLAZEPATE [Suspect]
     Indication: CARDIAC DISORDER
     Dosage: 2 MG BID PO
     Route: 048
  4. ZOLPIDEM [Suspect]
     Dosage: PO
     Route: 048
  5. ALLOPURINOL [Suspect]
     Dosage: DF PO
     Route: 048

REACTIONS (6)
  - DYSPNOEA [None]
  - HYPERKALAEMIA [None]
  - HYPONATRAEMIA [None]
  - INAPPROPRIATE ANTIDIURETIC HORMONE SECRETION [None]
  - LUNG DISORDER [None]
  - OEDEMA [None]
